FAERS Safety Report 8534495-9 (Version None)
Quarter: 2012Q3

REPORT INFORMATION
  Report Type: 
  Country: None (occurrence: None)
  Receive Date: 20120724
  Receipt Date: 20120724
  Transmission Date: 20120928
  Serious: Yes (Hospitalization)
  Sender: FDA-Public Use
  Company Number: CH-BAYER-2012-049937

PATIENT
  Sex: Female

DRUGS (2)
  1. LEVOTHYROXINE SODIUM [Concomitant]
     Dosage: 25 MG, QD
     Route: 048
  2. MIRENA [Suspect]
     Indication: METRORRHAGIA
     Dosage: UNK UNK, CONT
     Dates: start: 20090101

REACTIONS (3)
  - DYSPNOEA [None]
  - TACHYCARDIA [None]
  - PULMONARY EMBOLISM [None]
